FAERS Safety Report 4891073-0 (Version None)
Quarter: 2006Q1

REPORT INFORMATION
  Report Type: 
  Country: None (occurrence: None)
  Receive Date: 20060123
  Receipt Date: 20060113
  Transmission Date: 20060701
  Serious: Yes (Disabling)
  Sender: FDA-Public Use
  Company Number: T05-GER-03487-01

PATIENT
  Sex: Female

DRUGS (1)
  1. ESCITALOPRAM OXALATE [Suspect]
     Indication: DEPRESSION

REACTIONS (6)
  - DRUG HYPERSENSITIVITY [None]
  - EXCORIATION [None]
  - LICHEN PLANUS [None]
  - PHOTOSENSITIVITY REACTION [None]
  - SCRATCH [None]
  - SKIN ATROPHY [None]
